FAERS Safety Report 10419837 (Version 1)
Quarter: 2014Q3

REPORT INFORMATION
  Report Type: Spontaneous
  Country: JP (occurrence: JP)
  Receive Date: 20140829
  Receipt Date: 20140829
  Transmission Date: 20150326
  Serious: Yes (Other)
  Sender: FDA-Public Use
  Company Number: JP-GE HEALTHCARE MEDICAL DIAGNOSTICS-OMPQ-PR-1408L-1030

PATIENT
  Age: 26 Year
  Sex: Female

DRUGS (10)
  1. OMNIPAQUE [Suspect]
     Active Substance: IOHEXOL
     Indication: DIAGNOSTIC PROCEDURE
  2. OSELTAMIVIR [Concomitant]
     Active Substance: OSELTAMIVIR
     Indication: PYREXIA
  3. ETHENZAMIDE [Concomitant]
     Active Substance: ETHENZAMIDE
     Indication: PYREXIA
  4. ETHENZAMIDE [Concomitant]
     Active Substance: ETHENZAMIDE
     Indication: PAIN
  5. ALLYLISOPROPYLACETYLUREA [Concomitant]
     Indication: PAIN
  6. ACETAMINOPHEN. [Suspect]
     Active Substance: ACETAMINOPHEN
     Indication: PAIN
  7. ALLYLISOPROPYLACETYLUREA [Concomitant]
     Indication: PYREXIA
  8. OMNIPAQUE [Suspect]
     Active Substance: IOHEXOL
     Indication: ABDOMINAL PAIN
     Dosage: DOSE NOT REPORTED
     Route: 065
  9. MAOTO [Concomitant]
     Active Substance: UNSPECIFIED INGREDIENT
     Indication: PYREXIA
  10. ACETAMINOPHEN. [Suspect]
     Active Substance: ACETAMINOPHEN
     Indication: PYREXIA

REACTIONS (1)
  - Renal failure acute [Recovering/Resolving]
